FAERS Safety Report 5964771-5 (Version None)
Quarter: 2008Q4

REPORT INFORMATION
  Report Type: 
  Country: None (occurrence: None)
  Receive Date: 20081124
  Receipt Date: 20081124
  Transmission Date: 20090506
  Serious: Yes (Other)
  Sender: FDA-Public Use
  Company Number: None

PATIENT
  Age: 67 Year
  Sex: Female
  Weight: 86.1834 kg

DRUGS (1)
  1. LAMISIL [Suspect]
     Indication: ONYCHOMYCOSIS
     Dosage: 1 TABLET EACH DAY PO
     Route: 048
     Dates: start: 20080814, end: 20080920

REACTIONS (4)
  - AGEUSIA [None]
  - ANOREXIA [None]
  - DYSGEUSIA [None]
  - WEIGHT DECREASED [None]
